FAERS Safety Report 12590566 (Version 6)
Quarter: 2020Q3

REPORT INFORMATION
  Report Type: Report from Study
  Country: GB (occurrence: GB)
  Receive Date: 20160725
  Receipt Date: 20200803
  Transmission Date: 20201102
  Serious: Yes (Life-Threatening, Hospitalization)
  Sender: FDA-Public Use
  Company Number: HU-ASTRAZENECA-2016SE79973

PATIENT
  Age: 15658 Day
  Sex: Female

DRUGS (17)
  1. OLAPARIB. [Suspect]
     Active Substance: OLAPARIB
     Indication: NEOPLASM MALIGNANT
     Route: 048
     Dates: start: 20160719, end: 20160802
  2. LAXIDO [Concomitant]
     Active Substance: POLYETHYLENE GLYCOL 3350\POTASSIUM CHLORIDE\SODIUM BICARBONATE\SODIUM CHLORIDE
     Indication: CONSTIPATION
     Dosage: AS REQUIRED
     Route: 048
     Dates: start: 201602
  3. OLAPARIB. [Suspect]
     Active Substance: OLAPARIB
     Indication: NEOPLASM MALIGNANT
     Route: 048
     Dates: start: 20160706, end: 20160801
  4. AZD6738 [Suspect]
     Active Substance: CERALASERTIB
     Indication: NEOPLASM MALIGNANT
     Route: 048
     Dates: start: 20160706, end: 20160718
  5. AZD6738 [Suspect]
     Active Substance: CERALASERTIB
     Indication: NEOPLASM MALIGNANT
     Route: 048
     Dates: start: 20160907, end: 20160908
  6. OLAPARIB. [Suspect]
     Active Substance: OLAPARIB
     Indication: NEOPLASM MALIGNANT
     Route: 048
     Dates: start: 20160810, end: 20160906
  7. ORAMORPH [Concomitant]
     Active Substance: MORPHINE SULFATE
     Indication: PAIN
     Dosage: 10.0MG AS REQUIRED
     Route: 048
  8. OLAPARIB. [Suspect]
     Active Substance: OLAPARIB
     Indication: NEOPLASM MALIGNANT
     Route: 048
     Dates: start: 20160907, end: 20161003
  9. FERROUS SULFATE. [Concomitant]
     Active Substance: FERROUS SULFATE
     Indication: ANAEMIA
     Route: 048
     Dates: start: 201603
  10. CYCLIZINE [Concomitant]
     Active Substance: CYCLIZINE
     Indication: NAUSEA
     Dosage: 50.0MG AS REQUIRED
     Route: 048
     Dates: start: 20160614
  11. LANSOPRAZOLE. [Concomitant]
     Active Substance: LANSOPRAZOLE
     Indication: NAUSEA
     Route: 048
     Dates: start: 201409
  12. AZD6738 [Suspect]
     Active Substance: CERALASERTIB
     Indication: NEOPLASM MALIGNANT
     Route: 048
     Dates: start: 20160630, end: 20160630
  13. AZD6738 [Suspect]
     Active Substance: CERALASERTIB
     Indication: NEOPLASM MALIGNANT
     Route: 048
     Dates: start: 20160810, end: 20160811
  14. AZD6738 [Suspect]
     Active Substance: CERALASERTIB
     Indication: NEOPLASM MALIGNANT
     Route: 048
     Dates: start: 20160719, end: 20160719
  15. OLAPARIB. [Suspect]
     Active Substance: OLAPARIB
     Indication: NEOPLASM MALIGNANT
     Route: 048
     Dates: start: 20161004, end: 20161101
  16. PARACETAMOL [Concomitant]
     Active Substance: ACETAMINOPHEN
     Dosage: 1.0G AS REQUIRED
     Route: 048
  17. AZD6738 [Suspect]
     Active Substance: CERALASERTIB
     Indication: NEOPLASM MALIGNANT
     Route: 048
     Dates: start: 20161005, end: 20161006

REACTIONS (1)
  - Myelosuppression [Recovered/Resolved]

NARRATIVE: CASE EVENT DATE: 20160721
